FAERS Safety Report 19477295 (Version 2)
Quarter: 2022Q4

REPORT INFORMATION
  Report Type: Spontaneous
  Country: US (occurrence: US)
  Receive Date: 20210630
  Receipt Date: 20221004
  Transmission Date: 20230112
  Serious: Yes (Other)
  Sender: FDA-Public Use
  Company Number: US-SA-SAC20210625000657

PATIENT
  Age: 51 Year
  Sex: Female

DRUGS (1)
  1. ZANTAC [Suspect]
     Active Substance: RANITIDINE HYDROCHLORIDE
     Indication: Dyspepsia
     Dosage: 150 MG, QW
     Dates: start: 200604, end: 201910

REACTIONS (2)
  - Colorectal cancer stage I [Recovering/Resolving]
  - Haematological malignancy [Unknown]

NARRATIVE: CASE EVENT DATE: 20150701
